FAERS Safety Report 8839434 (Version 2)
Quarter: 2012Q4

REPORT INFORMATION
  Report Type: Report from Study
  Country: FR (occurrence: FR)
  Receive Date: 20121015
  Receipt Date: 20121203
  Transmission Date: 20130627
  Serious: Yes (Hospitalization)
  Sender: FDA-Public Use
  Company Number: FR-009507513-1210FRA003913

PATIENT
  Age: 41 Year
  Sex: Male
  Weight: 78 kg

DRUGS (5)
  1. BOCEPREVIR [Suspect]
     Indication: HEPATITIS C
     Dosage: UNK
     Dates: start: 20111114, end: 20111212
  2. VIRAFERONPEG [Suspect]
     Indication: HEPATITIS C
     Dosage: UNK
     Dates: start: 20111017, end: 20111212
  3. REBETOL [Suspect]
     Indication: HEPATITIS C
     Dosage: UNK
     Dates: start: 20111017, end: 20111212
  4. ISENTRESS [Concomitant]
     Indication: HIV INFECTION
     Dosage: 400 mg, bid
     Dates: start: 20110615
  5. TRUVADA [Concomitant]
     Indication: HIV INFECTION
     Dosage: 1 DF, qd
     Dates: start: 20110615

REACTIONS (1)
  - Arthropathy [Recovering/Resolving]
